FAERS Safety Report 17388581 (Version 3)
Quarter: 2022Q2

REPORT INFORMATION
  Report Type: Spontaneous
  Country: US (occurrence: US)
  Receive Date: 20200207
  Receipt Date: 20220512
  Transmission Date: 20220721
  Serious: No
  Sender: FDA-Public Use
  Company Number: US-PFIZER INC-2020036340

PATIENT
  Age: 75 Year
  Sex: Female

DRUGS (1)
  1. XELJANZ XR [Suspect]
     Active Substance: TOFACITINIB CITRATE
     Indication: Pain
     Dosage: 11 MG

REACTIONS (5)
  - Inflammation [Recovering/Resolving]
  - Rhinorrhoea [Unknown]
  - Joint stiffness [Unknown]
  - Joint swelling [Unknown]
  - Gait disturbance [Unknown]
